FAERS Safety Report 6048888-5 (Version None)
Quarter: 2009Q1

REPORT INFORMATION
  Report Type: 
  Country: None (occurrence: None)
  Receive Date: 20090123
  Receipt Date: 20090108
  Transmission Date: 20090719
  Serious: Yes (Other)
  Sender: FDA-Public Use
  Company Number: GB-BAUSCH-2009BL000071

PATIENT
  Age: 80 Year
  Sex: Female

DRUGS (2)
  1. MINIMS ATROPINE SULPHATE 1% [Suspect]
     Indication: KERATOCONJUNCTIVITIS SICCA
     Route: 047
     Dates: start: 20081008, end: 20081008
  2. MINIMS ARTIFICIAL TEARS [Concomitant]
     Indication: KERATOCONJUNCTIVITIS SICCA
     Route: 047
     Dates: start: 20081001

REACTIONS (7)
  - ABNORMAL SENSATION IN EYE [None]
  - BLINDNESS TRANSIENT [None]
  - DEPRESSION [None]
  - MEDICATION ERROR [None]
  - PANIC ATTACK [None]
  - PHOTOPHOBIA [None]
  - VISION BLURRED [None]
